FAERS Safety Report 9773717 (Version 1)
Quarter: 2013Q4

REPORT INFORMATION
  Report Type: Spontaneous
  Country: US (occurrence: US)
  Receive Date: 20131219
  Receipt Date: 20131219
  Transmission Date: 20140711
  Serious: No
  Sender: FDA-Public Use
  Company Number: US-GILEAD-2013-0090359

PATIENT
  Sex: Female

DRUGS (4)
  1. LETAIRIS [Suspect]
     Indication: PRODUCT USED FOR UNKNOWN INDICATION
     Dosage: 10 MG, QD
     Route: 065
     Dates: start: 20111027
  2. REVATIO [Concomitant]
  3. COUMADIN                           /00014802/ [Concomitant]
  4. TYVASO [Concomitant]

REACTIONS (3)
  - Tinnitus [Unknown]
  - Nausea [Unknown]
  - Dizziness [Unknown]
